FAERS Safety Report 5081389-X (Version None)
Quarter: 2006Q3

REPORT INFORMATION
  Report Type: 
  Country: None (occurrence: None)
  Receive Date: 20060720
  Receipt Date: 20060426
  Transmission Date: 20061208
  Serious: Yes (Hospitalization, Disabling, Other)
  Sender: FDA-Public Use
  Company Number: 2005126150

PATIENT
  Sex: Female

DRUGS (11)
  1. CELEBREX [Suspect]
     Indication: ILL-DEFINED DISORDER
     Dosage: (400 MG,AS NECESSARY),ORAL
     Route: 048
     Dates: start: 20000101, end: 20031101
  2. INSULIN [Concomitant]
  3. ATENOLOL [Concomitant]
  4. NORVASC [Concomitant]
  5. LASIX [Concomitant]
  6. NIASPAN [Concomitant]
  7. CHOLESTYRAMINE [Concomitant]
  8. MONTELUKAST (MONTELUKAST) [Concomitant]
  9. CLONIDINE [Concomitant]
  10. CELLCEPT [Concomitant]
  11. PLAQUENIL [Concomitant]

REACTIONS (2)
  - CEREBROVASCULAR ACCIDENT [None]
  - THROMBOSIS [None]
